FAERS Safety Report 9665595 (Version 1)
Quarter: 2013Q4

REPORT INFORMATION
  Report Type: Spontaneous
  Country: US (occurrence: None)
  Receive Date: 20131101
  Receipt Date: 20131101
  Transmission Date: 20140711
  Serious: Yes (Disabling)
  Sender: FDA-Public Use
  Company Number: None

PATIENT
  Age: 71 Year
  Sex: Male
  Weight: 90.72 kg

DRUGS (10)
  1. DOXAZOSIN MESYLATE [Suspect]
     Indication: BENIGN PROSTATIC HYPERPLASIA
     Route: 048
  2. SALOGEN [Concomitant]
  3. THYROXIN [Concomitant]
  4. GLUCOSAMINE +MSM ARTHRITIS [Concomitant]
  5. MATURE MULTI-VITAMIN EVERYTHING [Concomitant]
  6. VITAMIN D3 SUPPLEMENTRY [Concomitant]
  7. VIAGRA SEX [Concomitant]
  8. FLAX SEED OIL DRY EYES [Concomitant]
  9. PROSTATE COMPLEX (SAW PALMETTO+) [Concomitant]
  10. NIACIN [Concomitant]

REACTIONS (4)
  - Back pain [None]
  - Muscle spasms [None]
  - Gait disturbance [None]
  - Impaired work ability [None]
